FAERS Safety Report 22342118 (Version 18)
Quarter: 2025Q3

REPORT INFORMATION
  Report Type: Report from Study
  Country: US (occurrence: US)
  Receive Date: 20230519
  Receipt Date: 20250923
  Transmission Date: 20251020
  Serious: Yes (Other)
  Sender: TAKEDA
  Company Number: US-TAKEDA-2023TUS021863

PATIENT
  Age: 77 Year
  Sex: Female
  Weight: 67 kg

DRUGS (29)
  1. HUMAN IMMUNOGLOBULIN G [Suspect]
     Active Substance: HUMAN IMMUNOGLOBULIN G
     Indication: Pemphigoid
     Dosage: 25 GRAM, Q4WEEKS
  2. HUMAN IMMUNOGLOBULIN G [Suspect]
     Active Substance: HUMAN IMMUNOGLOBULIN G
  3. EPINEPHRINE [Concomitant]
     Active Substance: EPINEPHRINE
  4. ACETAMINOPHEN [Concomitant]
     Active Substance: ACETAMINOPHEN
  5. MYCOPHENOLATE MOFETIL [Concomitant]
     Active Substance: MYCOPHENOLATE MOFETIL
  6. SINGULAIR [Concomitant]
     Active Substance: MONTELUKAST SODIUM
  7. SODIUM CHLORIDE [Concomitant]
     Active Substance: SODIUM CHLORIDE
  8. VITAMIN D3 [Concomitant]
     Active Substance: CHOLECALCIFEROL
  9. PREMARIN [Concomitant]
     Active Substance: ESTROGENS, CONJUGATED
  10. DOXYCYCLINE HYCLATE [Concomitant]
     Active Substance: DOXYCYCLINE HYCLATE
  11. HEPARIN [Concomitant]
     Active Substance: HEPARIN SODIUM
  12. LIDOCAINE [Concomitant]
     Active Substance: LIDOCAINE
  13. IBUPROFEN [Concomitant]
     Active Substance: IBUPROFEN
  14. NIACINAMIDE [Concomitant]
     Active Substance: NIACINAMIDE
  15. CETIRIZINE HYDROCHLORIDE [Concomitant]
     Active Substance: CETIRIZINE HYDROCHLORIDE
  16. DIPHENHYDRAMINE [Concomitant]
     Active Substance: DIPHENHYDRAMINE
  17. CALCIUM\CHOLECALCIFEROL [Concomitant]
     Active Substance: CALCIUM\CHOLECALCIFEROL
  18. SODIUM CHLORIDE [Concomitant]
     Active Substance: SODIUM CHLORIDE
  19. MEDROXYPROGESTERONE [Concomitant]
     Active Substance: MEDROXYPROGESTERONE
  20. DIPHENHYDRAMINE HYDROCHLORIDE [Concomitant]
     Active Substance: DIPHENHYDRAMINE HYDROCHLORIDE
  21. CLOBETASOL PROPIONATE [Concomitant]
     Active Substance: CLOBETASOL PROPIONATE
  22. METHYLPREDNISOLONE [Concomitant]
     Active Substance: METHYLPREDNISOLONE
  23. VITAMIN C [Concomitant]
     Active Substance: ASCORBIC ACID
  24. FOSAMAX [Concomitant]
     Active Substance: ALENDRONATE SODIUM
  25. MEDROXYPROGESTERONE ACETATE [Concomitant]
     Active Substance: MEDROXYPROGESTERONE ACETATE
  26. PREDNISOLONE ACETATE [Concomitant]
     Active Substance: PREDNISOLONE ACETATE
  27. SALINE [Concomitant]
     Active Substance: SODIUM CHLORIDE
  28. CETIRIZINE [Concomitant]
     Active Substance: CETIRIZINE HYDROCHLORIDE
  29. MYCOPHENOLIC ACID [Concomitant]
     Active Substance: MYCOPHENOLIC ACID

REACTIONS (33)
  - Squamous cell carcinoma of skin [Unknown]
  - Cataract [Unknown]
  - Wound infection staphylococcal [Unknown]
  - Dry eye [Unknown]
  - Ocular hyperaemia [Unknown]
  - Pain in jaw [Unknown]
  - Food poisoning [Unknown]
  - Osteoporosis [Unknown]
  - Lacrimation increased [Unknown]
  - Musculoskeletal discomfort [Unknown]
  - Bursitis [Unknown]
  - Brain fog [Unknown]
  - Family stress [Unknown]
  - Seasonal allergy [Unknown]
  - Gingival disorder [Unknown]
  - Drug hypersensitivity [Unknown]
  - Sinus congestion [Unknown]
  - Sluggishness [Unknown]
  - Limb discomfort [Unknown]
  - Eye pruritus [Unknown]
  - Product dose omission issue [Unknown]
  - Inappropriate schedule of product administration [Unknown]
  - Abdominal discomfort [Unknown]
  - Photosensitivity reaction [Unknown]
  - Blood pressure increased [Unknown]
  - Eye pain [Unknown]
  - Anxiety [Unknown]
  - Back pain [Unknown]
  - Chills [Unknown]
  - Fatigue [Unknown]
  - Cough [Unknown]
  - Malaise [Unknown]
  - Diarrhoea [Unknown]

NARRATIVE: CASE EVENT DATE: 20230720
